FAERS Safety Report 19181357 (Version 1)
Quarter: 2021Q2

REPORT INFORMATION
  Report Type: Spontaneous
  Country: GB (occurrence: GB)
  Receive Date: 20210426
  Receipt Date: 20210426
  Transmission Date: 20210717
  Serious: Yes (Hospitalization)
  Sender: FDA-Public Use
  Company Number: GB-TEVA-2021-GB-1903953

PATIENT
  Age: 72 Year
  Sex: Female

DRUGS (11)
  1. HYDROXYCHLOROQUINE [Suspect]
     Active Substance: HYDROXYCHLOROQUINE
     Dosage: 400 MILLIGRAM DAILY;
  2. TRAMADOL. [Concomitant]
     Active Substance: TRAMADOL
     Dosage: 2 THREE TIMES A DAY IF REQUIRED, 100 MG
  3. BISACODYL. [Concomitant]
     Active Substance: BISACODYL
     Dosage: 10 MILLIGRAM DAILY; NIGHTLY
  4. ADCAL?D3 [Concomitant]
     Active Substance: CALCIUM CARBONATE\CHOLECALCIFEROL
     Dosage: PREFERABLY ONE TABLET EACH MORNING AND EVENING, 2 DOSAGE FORMS
  5. PERINDOPRIL ERBUMINE. [Concomitant]
     Active Substance: PERINDOPRIL ERBUMINE
     Dosage: 8 MILLIGRAM DAILY;
  6. BETAMETHASONE AND CALCIPOTRIOL [Concomitant]
     Dosage: 1 DOSAGE FORMS DAILY; 500MICROGRAMS/G/50MICROGRAMS/G
  7. CLOBETASOL [Concomitant]
     Active Substance: CLOBETASOL
     Dosage: APPLY 1?2 TIMES/DAY. 500MICROGRAMS/G, 0.05 %
  8. LANSOPRAZOLE. [Concomitant]
     Active Substance: LANSOPRAZOLE
     Dosage: 30 MILLIGRAM DAILY; EACH MORNING
  9. CAPASAL [Concomitant]
  10. EXOREX [Concomitant]
     Active Substance: COAL TAR
     Dosage: APPLY TO SKIN OR SCALP TWO TO THREE TIMES DAILY
  11. GABAPENTIN. [Suspect]
     Active Substance: GABAPENTIN
     Dosage: 1800 MILLIGRAM DAILY;

REACTIONS (1)
  - Electrocardiogram QT prolonged [Recovered/Resolved]
